FAERS Safety Report 10672517 (Version 1)
Quarter: 2014Q4

REPORT INFORMATION
  Report Type: Spontaneous
  Country: US (occurrence: None)
  Receive Date: 20141222
  Receipt Date: 20141222
  Transmission Date: 20150529
  Serious: Yes (Other)
  Sender: FDA-Public Use
  Company Number: None

PATIENT
  Age: 53 Year
  Sex: Female

DRUGS (8)
  1. TECFIDERA [Concomitant]
     Active Substance: DIMETHYL FUMARATE
  2. CIPRO [Concomitant]
     Active Substance: CIPROFLOXACIN HYDROCHLORIDE
  3. NEURONTIN [Concomitant]
     Active Substance: GABAPENTIN
  4. AMPYRA [Suspect]
     Active Substance: DALFAMPRIDINE
     Route: 048
     Dates: start: 201005, end: 201411
  5. MACRODANTIN [Concomitant]
     Active Substance: NITROFURANTOIN
  6. COUMADIN [Concomitant]
     Active Substance: WARFARIN SODIUM
  7. LASIX [Concomitant]
     Active Substance: FUROSEMIDE
  8. BACLOFEN. [Concomitant]
     Active Substance: BACLOFEN

REACTIONS (3)
  - Urinary tract infection bacterial [None]
  - Secondary progressive multiple sclerosis [None]
  - No therapeutic response [None]

NARRATIVE: CASE EVENT DATE: 20141013
